FAERS Safety Report 5482898-1 (Version None)
Quarter: 2007Q4

REPORT INFORMATION
  Report Type: 
  Country: None (occurrence: None)
  Receive Date: 20071011
  Receipt Date: 20070928
  Transmission Date: 20080405
  Serious: Yes (Other)
  Sender: FDA-Public Use
  Company Number: US-PFIZER INC-2007081496

PATIENT
  Sex: Male
  Weight: 77.6 kg

DRUGS (1)
  1. CHANTIX [Suspect]
     Indication: SMOKING CESSATION THERAPY
     Dates: start: 20070901, end: 20070925

REACTIONS (8)
  - ABDOMINAL PAIN UPPER [None]
  - ABNORMAL DREAMS [None]
  - ACTIVITIES OF DAILY LIVING IMPAIRED [None]
  - GASTROENTERITIS VIRAL [None]
  - HAEMATOCHEZIA [None]
  - SKIN DISCOLOURATION [None]
  - ULCER HAEMORRHAGE [None]
  - VOMITING [None]
